FAERS Safety Report 15450171 (Version 4)
Quarter: 2019Q3

REPORT INFORMATION
  Report Type: Spontaneous
  Country: US (occurrence: US)
  Receive Date: 20181001
  Receipt Date: 20190930
  Transmission Date: 20191004
  Serious: No
  Sender: FDA-Public Use
  Company Number: US-PFIZER INC-2018388720

PATIENT
  Age: 44 Year
  Sex: Female
  Weight: 115.67 kg

DRUGS (3)
  1. SOMAVERT [Suspect]
     Active Substance: PEGVISOMANT
     Indication: ACROMEGALY
     Dosage: 10 MG, DAILY
  2. SOMAVERT [Suspect]
     Active Substance: PEGVISOMANT
     Indication: BRAIN NEOPLASM
     Dosage: 10 MG, 1X/DAY
     Route: 058
     Dates: start: 201806
  3. SOMAVERT [Suspect]
     Active Substance: PEGVISOMANT
     Indication: PITUITARY TUMOUR
     Dosage: 10 MG, UNK (10MG SDV 1ML DILUENT)
     Dates: start: 20190725

REACTIONS (2)
  - Incorrect dose administered [Unknown]
  - Gait disturbance [Unknown]

NARRATIVE: CASE EVENT DATE: 201806
